FAERS Safety Report 13639081 (Version 1)
Quarter: 2017Q2

REPORT INFORMATION
  Report Type: Spontaneous
  Country: US (occurrence: US)
  Receive Date: 20170609
  Receipt Date: 20170609
  Transmission Date: 20170830
  Serious: No
  Sender: FDA-Public Use
  Company Number: US-ROCHE-1383039

PATIENT
  Sex: Male

DRUGS (2)
  1. KLONOPIN [Suspect]
     Active Substance: CLONAZEPAM
     Indication: PAIN
  2. KLONOPIN [Suspect]
     Active Substance: CLONAZEPAM
     Indication: ORAL PAIN
     Route: 065

REACTIONS (3)
  - Anxiety [Unknown]
  - Rash [Unknown]
  - Diverticulitis [Unknown]
